FAERS Safety Report 14945659 (Version 2)
Quarter: 2018Q4

REPORT INFORMATION
  Report Type: Spontaneous
  Country: DE (occurrence: DE)
  Receive Date: 20180529
  Receipt Date: 20181001
  Transmission Date: 20190204
  Serious: Yes (Life-Threatening, Hospitalization, Other)
  Sender: FDA-Public Use
  Company Number: DE-SUN PHARMACEUTICAL INDUSTRIES LTD-2018RR-174032

PATIENT
  Age: 78 Year
  Sex: Male
  Weight: 64.8 kg

DRUGS (7)
  1. ABRAXANE [Suspect]
     Active Substance: PACLITAXEL
     Dosage: 62.5 MG
     Route: 041
     Dates: end: 20160208
  2. ABRAXANE [Suspect]
     Active Substance: PACLITAXEL
     Dosage: (50% OF 323.75MG) ()
     Route: 041
     Dates: start: 20160301
  3. ABRAXANE [Suspect]
     Active Substance: PACLITAXEL
     Dosage: 198.75 MG
     Route: 041
     Dates: end: 20160404
  4. GEMCITABINE [Suspect]
     Active Substance: GEMCITABINE\GEMCITABINE HYDROCHLORIDE
     Dosage: 500 MG
     Route: 065
     Dates: end: 20160208
  5. ABRAXANE [Suspect]
     Active Substance: PACLITAXEL
     Indication: PANCREATIC CARCINOMA METASTATIC
     Dosage: 125 MG/M2
     Route: 041
     Dates: start: 20160107
  6. GEMCITABINE [Suspect]
     Active Substance: GEMCITABINE\GEMCITABINE HYDROCHLORIDE
     Indication: PANCREATIC CARCINOMA METASTATIC
     Dosage: 1000 MG/M2
     Route: 065
     Dates: start: 20160107
  7. ABRAXANE [Suspect]
     Active Substance: PACLITAXEL
     Dosage: 323.75 MG
     Route: 041
     Dates: start: 20160107

REACTIONS (3)
  - Thrombocytopenia [Not Recovered/Not Resolved]
  - Leukopenia [Not Recovered/Not Resolved]
  - Escherichia sepsis [Recovered/Resolved]

NARRATIVE: CASE EVENT DATE: 20160122
